FAERS Safety Report 14081295 (Version 2)
Quarter: 2017Q4

REPORT INFORMATION
  Report Type: Spontaneous
  Country: FR (occurrence: FR)
  Receive Date: 20171012
  Receipt Date: 20171211
  Transmission Date: 20180321
  Serious: Yes (Other)
  Sender: FDA-Public Use
  Company Number: FR-BRISTOL-MYERS SQUIBB COMPANY-BMS-2017-090555

PATIENT
  Age: 62 Year
  Sex: Female
  Weight: 58 kg

DRUGS (2)
  1. CORTANCYL [Suspect]
     Active Substance: PREDNISONE
     Indication: ARTHRALGIA
     Dosage: 0.3 MG/KG, QD (20MG/J)
     Route: 048
     Dates: start: 201701
  2. OPDIVO [Suspect]
     Active Substance: NIVOLUMAB
     Indication: LUNG NEOPLASM MALIGNANT
     Dosage: 1 T; 4 WEEK
     Route: 042
     Dates: start: 201609

REACTIONS (4)
  - Back pain [Not Recovered/Not Resolved]
  - Arthralgia [Recovering/Resolving]
  - Spinal fracture [Not Recovered/Not Resolved]
  - Osteoporosis [Not Recovered/Not Resolved]

NARRATIVE: CASE EVENT DATE: 201701
